FAERS Safety Report 5150488-6 (Version None)
Quarter: 2006Q4

REPORT INFORMATION
  Report Type: 
  Country: None (occurrence: None)
  Receive Date: 20061114
  Receipt Date: 20061005
  Transmission Date: 20070319
  Serious: Yes (Other)
  Sender: FDA-Public Use
  Company Number: US-GLAXOSMITHKLINE-A0622645A

PATIENT
  Age: 85 Year
  Sex: Female

DRUGS (11)
  1. ADVAIR DISKUS 100/50 [Suspect]
     Indication: ASTHMA
     Dosage: 1PUFF TWICE PER DAY
     Route: 055
     Dates: start: 20060101
  2. APRESOLINE [Concomitant]
  3. PLAVIX [Concomitant]
  4. NITROGLYCERIN [Concomitant]
  5. CATAPRES [Concomitant]
  6. EFFEXOR [Concomitant]
  7. ACTONEL [Concomitant]
  8. ACTOS [Concomitant]
  9. IMDUR [Concomitant]
  10. SYNTHROID [Concomitant]
  11. XANAX [Concomitant]

REACTIONS (3)
  - CANDIDIASIS [None]
  - OVERDOSE [None]
  - PHARMACEUTICAL PRODUCT COMPLAINT [None]
